FAERS Safety Report 8333924-3 (Version None)
Quarter: 2012Q2

REPORT INFORMATION
  Report Type: 
  Country: None (occurrence: None)
  Receive Date: 20120503
  Receipt Date: 20110217
  Transmission Date: 20120825
  Serious: No
  Sender: FDA-Public Use
  Company Number: US-TEVA-2011000384

PATIENT
  Sex: Female
  Weight: 79.45 kg

DRUGS (7)
  1. NUVIGIL [Suspect]
     Indication: CIRCADIAN RHYTHM SLEEP DISORDER
     Dosage: 53.5714 MILLIGRAM;
     Route: 048
     Dates: start: 20110101
  2. LODINE [Concomitant]
  3. LAMICTAL [Concomitant]
  4. PRIMIDONE [Concomitant]
  5. CYMBALTA [Concomitant]
  6. SNYTHROID [Concomitant]
  7. PROPRANOLOL [Concomitant]

REACTIONS (2)
  - FLUSHING [None]
  - HEADACHE [None]
